FAERS Safety Report 4465495-6 (Version None)
Quarter: 2004Q4

REPORT INFORMATION
  Report Type: 
  Country: None (occurrence: None)
  Receive Date: 20041001
  Receipt Date: 20040811
  Transmission Date: 20050328
  Serious: Yes (Hospitalization)
  Sender: FDA-Public Use
  Company Number: CIO04018574

PATIENT
  Age: 24 Year
  Sex: Female
  Weight: 73 kg

DRUGS (1)
  1. PEPTO-BISMOL, FORM/VERSION/FLAVOR UNKNOWN(BISMUTH SUBSALICYLATE 262 OR [Suspect]
     Indication: DIARRHOEA
     Dosage: 1/DAY FOR 5 DAYS, ORAL
     Route: 048
     Dates: start: 20040731, end: 20040805

REACTIONS (5)
  - ABDOMINAL PAIN UPPER [None]
  - DRUG INEFFECTIVE [None]
  - DYSPEPSIA [None]
  - FEELING ABNORMAL [None]
  - STOMACH DISCOMFORT [None]
